FAERS Safety Report 7707743-2 (Version None)
Quarter: 2011Q3

REPORT INFORMATION
  Report Type: 
  Country: None (occurrence: None)
  Receive Date: 20110824
  Receipt Date: 20110810
  Transmission Date: 20111222
  Serious: Yes (Hospitalization)
  Sender: FDA-Public Use
  Company Number: US-WATSON-2011-12846

PATIENT
  Sex: Female

DRUGS (3)
  1. LABETALOL HCL [Suspect]
     Dosage: 1 TAB DAILY (THERAPY DATES UNKNOWN)
     Route: 048
  2. FLECAINIDE ACETATE [Concomitant]
     Indication: ARRHYTHMIA
     Dosage: 1 TABLET BID
     Route: 048
  3. LABETALOL HCL [Suspect]
     Indication: HYPERTENSION
     Dosage: 1/2 TAB DAILY; STARTED 2 DAYS AFTER LAST DOSE OF 100 MG
     Route: 048

REACTIONS (5)
  - ASTHENIA [None]
  - MUSCULAR WEAKNESS [None]
  - HEART RATE INCREASED [None]
  - PALPITATIONS [None]
  - NAUSEA [None]
